FAERS Safety Report 23705238 (Version 31)
Quarter: 2025Q4

REPORT INFORMATION
  Report Type: Report from Study
  Country: CO (occurrence: CO)
  Receive Date: 20240404
  Receipt Date: 20251223
  Transmission Date: 20260118
  Serious: Yes (Hospitalization)
  Sender: TAKEDA
  Company Number: CO-TAKEDA-CO202014268

PATIENT
  Age: 6 Year
  Sex: Female
  Weight: 35 kg

DRUGS (7)
  1. ICATIBANT [Suspect]
     Active Substance: ICATIBANT ACETATE
     Indication: Hereditary angioedema
     Dosage: 30 MILLIGRAM, Q6HR
     Dates: start: 20180215
  2. ICATIBANT [Suspect]
     Active Substance: ICATIBANT ACETATE
     Dosage: 10 MILLIGRAM, Q6HR
  3. ICATIBANT [Suspect]
     Active Substance: ICATIBANT ACETATE
     Dosage: 30 MILLIGRAM, Q6HR
  4. ICATIBANT [Suspect]
     Active Substance: ICATIBANT ACETATE
     Dosage: UNK UNK, Q6HR
  5. ICATIBANT [Suspect]
     Active Substance: ICATIBANT ACETATE
     Dosage: UNK
  6. ICATIBANT [Suspect]
     Active Substance: ICATIBANT ACETATE
     Dosage: 20 MILLIGRAM
  7. TAKHZYRO [Suspect]
     Active Substance: LANADELUMAB-FLYO
     Indication: Hereditary angioedema
     Dosage: 300 MILLIGRAM, Q2WEEKS
     Dates: start: 20250506

REACTIONS (16)
  - Muscular weakness [Recovering/Resolving]
  - Gait disturbance [Unknown]
  - Transaminases increased [Unknown]
  - Dizziness [Recovering/Resolving]
  - Pyrexia [Recovering/Resolving]
  - Product use issue [Unknown]
  - Product preparation error [Unknown]
  - Product availability issue [Unknown]
  - Treatment noncompliance [Unknown]
  - Product prescribing error [Unknown]
  - Prescribed underdose [Unknown]
  - Incorrect dose administered [Unknown]
  - Weight decreased [Unknown]
  - Body height increased [Unknown]
  - Weight increased [Unknown]
  - Respiration abnormal [Recovering/Resolving]

NARRATIVE: CASE EVENT DATE: 20201213
